FAERS Safety Report 14548612 (Version 1)
Quarter: 2018Q1

REPORT INFORMATION
  Report Type: Spontaneous
  Country: US (occurrence: US)
  Receive Date: 20180219
  Receipt Date: 20180219
  Transmission Date: 20180509
  Serious: No
  Sender: FDA-Public Use
  Company Number: US-ROCHE-1919036

PATIENT
  Sex: Female
  Weight: 92.62 kg

DRUGS (1)
  1. XOLAIR [Suspect]
     Active Substance: OMALIZUMAB
     Indication: IDIOPATHIC URTICARIA
     Dosage: YES
     Route: 058

REACTIONS (4)
  - Swelling [Unknown]
  - Burning sensation [Unknown]
  - Dysphonia [Unknown]
  - Erythema [Unknown]
